FAERS Safety Report 14614904 (Version 4)
Quarter: 2018Q2

REPORT INFORMATION
  Report Type: Report from Study
  Country: HU (occurrence: HU)
  Receive Date: 20180308
  Receipt Date: 20180405
  Transmission Date: 20180711
  Serious: Yes (Death)
  Sender: FDA-Public Use
  Company Number: HU-PFIZER INC-2018092369

PATIENT
  Age: 63 Year
  Sex: Male

DRUGS (2)
  1. MEROPENEM. [Suspect]
     Active Substance: MEROPENEM
     Indication: SEPSIS
     Dosage: 1 DF, SINGLE (2 G)
     Route: 042
     Dates: start: 20160925, end: 20160925
  2. CEFTRIAXONE SODIUM. [Suspect]
     Active Substance: CEFTRIAXONE SODIUM
     Indication: SEPSIS
     Dosage: 1 DF, SINGLE (2 G)
     Route: 042
     Dates: start: 20160925, end: 20160925

REACTIONS (2)
  - Drug ineffective [Fatal]
  - Streptococcal infection [Fatal]
